FAERS Safety Report 21653608 (Version 2)
Quarter: 2022Q4

REPORT INFORMATION
  Report Type: Spontaneous
  Country: BR (occurrence: BR)
  Receive Date: 20221129
  Receipt Date: 20221216
  Transmission Date: 20230112
  Serious: Yes (Death, Hospitalization, Other)
  Sender: FDA-Public Use
  Company Number: BR-BRISTOL-MYERS SQUIBB COMPANY-2022-143959

PATIENT
  Age: 66 Year
  Sex: Male
  Weight: 57.30 kg

DRUGS (4)
  1. ABRAXANE [Suspect]
     Active Substance: PACLITAXEL
     Indication: Pancreatic neoplasm
     Dosage: 175 MG ON DAY 1,8, 15 OF A 28 DAY CYCLE
     Route: 042
     Dates: start: 20220826, end: 20220826
  2. ABRAXANE [Suspect]
     Active Substance: PACLITAXEL
     Dosage: 175 MG ON DAY 1,8, 15 OF A 28 DAY CYCLE
     Route: 042
     Dates: start: 20220909, end: 20220909
  3. GEMCITABINE HYDROCHLORIDE [Suspect]
     Active Substance: GEMCITABINE HYDROCHLORIDE
     Indication: Pancreatic neoplasm
     Dosage: 1750 MG) ON DAYS 1, 8 AND 15 OF A 28-DAY CYCLE
     Route: 042
  4. GEMCITABINE HYDROCHLORIDE [Suspect]
     Active Substance: GEMCITABINE HYDROCHLORIDE
     Dosage: 1750 MG) ON DAYS 1, 8 AND 15 OF A 28-DAY CYCLE
     Route: 042

REACTIONS (3)
  - Neutropenia [Recovered/Resolved]
  - Abdominal pain [Fatal]
  - Malignant neoplasm progression [Fatal]

NARRATIVE: CASE EVENT DATE: 20220901
